FAERS Safety Report 17477042 (Version 1)
Quarter: 2020Q1

REPORT INFORMATION
  Report Type: Report from Study
  Country: CO (occurrence: CO)
  Receive Date: 20200228
  Receipt Date: 20200228
  Transmission Date: 20200409
  Serious: Yes (Other)
  Sender: FDA-Public Use
  Company Number: CO-JNJFOC-20190907615

PATIENT
  Sex: Female
  Weight: 51 kg

DRUGS (4)
  1. SIMPONI [Suspect]
     Active Substance: GOLIMUMAB
     Indication: COLITIS ULCERATIVE
     Dosage: WEEK 0?LAST ADMINISTRATION OF 50 MG GOLIMUMAB WAS ADMINISTERED ON 02-AUG-2019.
     Route: 058
     Dates: start: 20190703, end: 20190703
  2. SIMPONI [Suspect]
     Active Substance: GOLIMUMAB
     Dosage: 4 WEEKS
     Route: 058
     Dates: start: 20190801, end: 20190801
  3. SIMPONI [Suspect]
     Active Substance: GOLIMUMAB
     Dosage: TREATMENT WAS ONGOING
     Route: 058
     Dates: start: 20190901
  4. SIMPONI [Suspect]
     Active Substance: GOLIMUMAB
     Dosage: WEEK 2
     Route: 058
     Dates: start: 20190718, end: 20190718

REACTIONS (6)
  - Hernial eventration [Not Recovered/Not Resolved]
  - Off label use [Unknown]
  - Bronchitis [Not Recovered/Not Resolved]
  - Incorrect dose administered [Unknown]
  - Faecal calprotectin increased [Unknown]
  - Anaemia [Not Recovered/Not Resolved]

NARRATIVE: CASE EVENT DATE: 2019
